FAERS Safety Report 15385177 (Version 3)
Quarter: 2023Q4

REPORT INFORMATION
  Report Type: Report from Study
  Country: DE (occurrence: DE)
  Receive Date: 20180914
  Receipt Date: 20231215
  Transmission Date: 20240110
  Serious: Yes (Hospitalization)
  Sender: FDA-Public Use
  Company Number: DE-AMGEN-DEUNI2018126466

PATIENT
  Age: 75 Year
  Sex: Male
  Weight: 74 kg

DRUGS (28)
  1. PANITUMUMAB [Suspect]
     Active Substance: PANITUMUMAB
     Indication: Colorectal cancer metastatic
     Dosage: 444 MILLIGRAM
     Route: 042
     Dates: start: 20180516
  2. PANITUMUMAB [Suspect]
     Active Substance: PANITUMUMAB
     Dosage: 432 MILLIGRAM
     Route: 042
     Dates: start: 20180615
  3. PANITUMUMAB [Suspect]
     Active Substance: PANITUMUMAB
     Dosage: 420 MILLIGRAM
     Route: 042
     Dates: start: 20180809
  4. PANITUMUMAB [Suspect]
     Active Substance: PANITUMUMAB
     Dosage: 408 MILLIGRAM
     Route: 042
     Dates: start: 20180823
  5. IRINOTECAN [Suspect]
     Active Substance: IRINOTECAN
     Indication: Colorectal cancer metastatic
     Dosage: 342 MILLIGRAM
     Route: 065
     Dates: start: 20180430
  6. IRINOTECAN [Suspect]
     Active Substance: IRINOTECAN
     Dosage: 338 MILLIGRAM
     Route: 065
     Dates: start: 20180516
  7. IRINOTECAN [Suspect]
     Active Substance: IRINOTECAN
     Dosage: 334 MILLIGRAM
     Route: 065
     Dates: start: 20180615
  8. IRINOTECAN [Suspect]
     Active Substance: IRINOTECAN
     Dosage: 329 MILLIGRAM
     Route: 065
     Dates: start: 20180809
  9. IRINOTECAN [Suspect]
     Active Substance: IRINOTECAN
     Dosage: 325 MILLIGRAM
     Route: 065
     Dates: start: 20180823
  10. LEUCOVORIN [Suspect]
     Active Substance: LEUCOVORIN\LEUCOVORIN CALCIUM
     Indication: Colorectal cancer metastatic
     Dosage: 760 MILLIGRAM
     Route: 065
     Dates: start: 20180430
  11. LEUCOVORIN [Suspect]
     Active Substance: LEUCOVORIN\LEUCOVORIN CALCIUM
     Dosage: 752 MILLIGRAM
     Route: 065
     Dates: start: 20180516
  12. LEUCOVORIN [Suspect]
     Active Substance: LEUCOVORIN\LEUCOVORIN CALCIUM
     Dosage: 744 MILLIGRAM
     Route: 065
     Dates: start: 20180615
  13. LEUCOVORIN [Suspect]
     Active Substance: LEUCOVORIN\LEUCOVORIN CALCIUM
     Dosage: 732 MILLIGRAM
     Route: 065
     Dates: start: 20180809
  14. LEUCOVORIN [Suspect]
     Active Substance: LEUCOVORIN\LEUCOVORIN CALCIUM
     Dosage: 724 MILLIGRAM
     Route: 065
     Dates: start: 20180823
  15. FLUOROURACIL [Suspect]
     Active Substance: FLUOROURACIL
     Indication: Colorectal cancer metastatic
     Dosage: 1520 MILLIGRAM
     Route: 040
     Dates: start: 20180430
  16. FLUOROURACIL [Suspect]
     Active Substance: FLUOROURACIL
     Dosage: 2280 MILLIGRAM
     Route: 042
     Dates: start: 20180430
  17. FLUOROURACIL [Suspect]
     Active Substance: FLUOROURACIL
     Dosage: 752 MILLIGRAM
     Route: 040
     Dates: start: 20180516
  18. FLUOROURACIL [Suspect]
     Active Substance: FLUOROURACIL
     Dosage: 4512 MILLIGRAM
     Route: 042
     Dates: start: 20180516
  19. FLUOROURACIL [Suspect]
     Active Substance: FLUOROURACIL
     Dosage: 744 MILLIGRAM
     Route: 040
     Dates: start: 20180615
  20. FLUOROURACIL [Suspect]
     Active Substance: FLUOROURACIL
     Dosage: 4464 MILLIGRAM
     Route: 042
     Dates: start: 20180615
  21. FLUOROURACIL [Suspect]
     Active Substance: FLUOROURACIL
     Dosage: 4392 MILLIGRAM
     Route: 042
     Dates: start: 20180809
  22. FLUOROURACIL [Suspect]
     Active Substance: FLUOROURACIL
     Dosage: 4344 MILLIGRAM
     Route: 042
     Dates: start: 20180823
  23. AMOXICILLIN [Concomitant]
     Active Substance: AMOXICILLIN
     Indication: Prophylaxis
     Dosage: 875 MILLIGRAM, BID
     Route: 048
     Dates: start: 20180613, end: 20180620
  24. SPIRIVA [Concomitant]
     Active Substance: TIOTROPIUM BROMIDE MONOHYDRATE
     Indication: Chronic obstructive pulmonary disease
     Dosage: 18 MUG, QD
     Route: 055
     Dates: start: 20150101
  25. PREDNISOLONE [Concomitant]
     Active Substance: PREDNISOLONE
     Indication: Colitis ulcerative
     Dosage: 7.5-75 MILLIGRAM QD
     Dates: start: 20170701, end: 20180906
  26. FENTANYL [Concomitant]
     Active Substance: FENTANYL\FENTANYL CITRATE
     Indication: Pain
     Dosage: 12.5 MICROGRAM
     Route: 062
     Dates: start: 20160710
  27. BISOPROLOL [Concomitant]
     Active Substance: BISOPROLOL\BISOPROLOL FUMARATE
     Indication: Tachycardia
     Dosage: 2.5 MILLIGRAM, QD
     Route: 048
     Dates: start: 20180517
  28. MINOCYCLINE HYDROCHLORIDE [Concomitant]
     Active Substance: MINOCYCLINE HYDROCHLORIDE
     Indication: Prophylaxis
     Dosage: 50 MILLIGRAM, BID
     Route: 048
     Dates: start: 20180516

REACTIONS (1)
  - Colitis [Recovered/Resolved]

NARRATIVE: CASE EVENT DATE: 20180902
